FAERS Safety Report 10503950 (Version 2)
Quarter: 2014Q4

REPORT INFORMATION
  Report Type: Spontaneous
  Country: US (occurrence: US)
  Receive Date: 20141008
  Receipt Date: 20141008
  Transmission Date: 20150528
  Serious: No
  Sender: FDA-Public Use
  Company Number: US-BEH-2010025321

PATIENT
  Age: 55 Year
  Sex: Female
  Weight: 54 kg

DRUGS (7)
  1. PRIVIGEN [Suspect]
     Active Substance: HUMAN IMMUNOGLOBULIN G
     Indication: IMMUNODEFICIENCY
     Dosage: 30 G OVER 4.5 HOURS
     Route: 042
     Dates: start: 20100628
  2. TEMAZEPAM. [Concomitant]
     Active Substance: TEMAZEPAM
     Dosage: 15 MG DAILY
     Route: 048
     Dates: start: 20100519
  3. PRIVIGEN [Suspect]
     Active Substance: HUMAN IMMUNOGLOBULIN G
     Indication: HYPOGAMMAGLOBULINAEMIA
     Dosage: 20 G OVER 5.5 HOURS EVERY 3 WEEKS; JUN-2010
     Route: 042
  4. ACYCLOVIR. [Concomitant]
     Active Substance: ACYCLOVIR
     Dosage: 500 MG TWICE DAILY
     Route: 048
     Dates: start: 20100519
  5. CELEXA [Concomitant]
     Active Substance: CITALOPRAM HYDROBROMIDE
     Dosage: 10 MG DAILY
     Route: 048
     Dates: start: 20100519
  6. PRIVIGEN [Suspect]
     Active Substance: HUMAN IMMUNOGLOBULIN G
  7. MIACALCIN [Concomitant]
     Active Substance: CALCITONIN SALMON
     Dosage: 1 PUFF EVERY OTHER DAY NASAL
     Route: 055
     Dates: start: 20100607

REACTIONS (8)
  - Back pain [Recovered/Resolved]
  - Photosensitivity reaction [Recovered/Resolved]
  - Headache [Unknown]
  - Fatigue [Unknown]
  - Neck pain [Recovered/Resolved]
  - Malaise [Unknown]
  - Neck pain [Recovered/Resolved]
  - Neck pain [Recovered/Resolved]

NARRATIVE: CASE EVENT DATE: 201006
